FAERS Safety Report 8826444 (Version 1)
Quarter: 2012Q4

REPORT INFORMATION
  Report Type: 
  Country: FR (occurrence: FR)
  Receive Date: 20121005
  Receipt Date: 20121005
  Transmission Date: 20130627
  Serious: Yes (Other)
  Sender: FDA-Public Use
  Company Number: PHHY2012FR087298

PATIENT
  Age: 72 Year
  Sex: Female

DRUGS (1)
  1. ACLASTA [Suspect]
     Indication: SPINAL FRACTURE
     Dosage: UNK
     Route: 042
     Dates: start: 2011

REACTIONS (4)
  - Memory impairment [Unknown]
  - Personality disorder [Unknown]
  - Incoherent [Unknown]
  - Tremor [Unknown]
